FAERS Safety Report 8238103-6 (Version None)
Quarter: 2012Q1

REPORT INFORMATION
  Report Type: 
  Country: None (occurrence: None)
  Receive Date: 20120323
  Receipt Date: 20120312
  Transmission Date: 20120608
  Serious: No
  Sender: FDA-Public Use
  Company Number: 2012SP011766

PATIENT
  Age: 67 Year
  Sex: Female
  Weight: 70 kg

DRUGS (9)
  1. FUROSEMIDE [Concomitant]
  2. FILGRASTIM [Concomitant]
  3. LACTITOL [Concomitant]
  4. VICTRELIS [Suspect]
     Indication: HEPATITIS C
     Dosage: 800 MG;Q12H;PO
     Route: 048
     Dates: start: 20111013
  5. ALDACTON [Concomitant]
  6. FOSFOMYCIN (FOSFOMYCIN) [Suspect]
     Indication: URINARY TRACT INFECTION
     Dosage: UNK;UNK
  7. OMEPRAZOLE [Concomitant]
  8. PEG-INTRON [Suspect]
     Indication: HEPATITIS C
     Dosage: 100 MCG;UNK;SC
     Route: 058
  9. REBETOL [Suspect]
     Indication: HEPATITIS C
     Dosage: 400 MG;Q12H;PO
     Route: 048

REACTIONS (4)
  - BLOOD OSMOLARITY ABNORMAL [None]
  - URINE OSMOLARITY INCREASED [None]
  - HYPONATRAEMIA [None]
  - DRUG INTERACTION [None]
